FAERS Safety Report 8157718-7 (Version None)
Quarter: 2012Q1

REPORT INFORMATION
  Report Type: 
  Country: None (occurrence: None)
  Receive Date: 20120222
  Receipt Date: 20120220
  Transmission Date: 20120608
  Serious: Yes (Life-Threatening, Hospitalization, Other)
  Sender: FDA-Public Use
  Company Number: DE-PFIZER INC-2012035228

PATIENT
  Age: 55 Year
  Sex: Male
  Weight: 85 kg

DRUGS (6)
  1. VANCOMYCIN-RATIOPHARM [Concomitant]
     Dosage: 0.5 G, 1X/DAY
     Route: 042
     Dates: start: 20110725, end: 20110725
  2. TAZOBACTAM [Suspect]
     Dosage: 4.5 G, 1-2 TIMES PER DAY
     Route: 042
     Dates: start: 20110805, end: 20110811
  3. RIFAMPICIN [Concomitant]
     Dosage: 600 MG PER DAY
     Route: 042
     Dates: start: 20110713, end: 20110726
  4. VANCOMYCIN-RATIOPHARM [Concomitant]
     Dosage: 1 G, 1X/DAY
     Route: 042
     Dates: start: 20110722, end: 20110724
  5. DOXYCYCLINE [Concomitant]
     Dosage: UNK
     Dates: start: 20110727
  6. VANCOMYCIN-RATIOPHARM [Concomitant]
     Dosage: 1 G, 2X/DAY
     Route: 042
     Dates: start: 20110713, end: 20110721

REACTIONS (1)
  - DERMATITIS ALLERGIC [None]
